FAERS Safety Report 24235698 (Version 1)
Quarter: 2024Q3

REPORT INFORMATION
  Report Type: Spontaneous
  Country: US (occurrence: US)
  Receive Date: 20240822
  Receipt Date: 20240822
  Transmission Date: 20241016
  Serious: Yes (Other)
  Sender: CHURCH & DWIGHT
  Company Number: US-ChurchDwight-2024-CDW-01297

PATIENT

DRUGS (1)
  1. THERABREATH PLAQUE CONTROL [Suspect]
     Active Substance: CETYLPYRIDINIUM CHLORIDE
     Indication: Product used for unknown indication
     Route: 002

REACTIONS (3)
  - Dyspnoea [Unknown]
  - Hypersensitivity [Unknown]
  - Throat tightness [Unknown]
